FAERS Safety Report 9115014 (Version 1)
Quarter: 2013Q1

REPORT INFORMATION
  Report Type: Spontaneous
  Country: GB (occurrence: None)
  Receive Date: 20130125
  Receipt Date: 20130125
  Transmission Date: 20140127
  Serious: Yes (Other)
  Sender: FDA-Public Use
  Company Number: DSA_61972_2013

PATIENT
  Age: 50 Year
  Sex: Male

DRUGS (3)
  1. DILTIAZEM (DILTIAZEM-DILTIAZEM HYDROCHLORIDE) [Suspect]
     Indication: ANAL FISSURE
     Dosage: (DF)
     Dates: start: 20121223, end: 20121230
  2. SODIUM VALPROATE [Concomitant]
  3. GABAPENTIN [Concomitant]

REACTIONS (1)
  - Convulsion [None]
